FAERS Safety Report 8444636-X (Version None)
Quarter: 2012Q2

REPORT INFORMATION
  Report Type: 
  Country: None (occurrence: None)
  Receive Date: 20120618
  Receipt Date: 20120612
  Transmission Date: 20120825
  Serious: Yes (Death, Hospitalization, Other)
  Sender: FDA-Public Use
  Company Number: US-PFIZER INC-2012105875

PATIENT
  Sex: Female

DRUGS (24)
  1. XANAX [Concomitant]
     Dosage: 0.25 MG, 3X/DAY
     Route: 048
  2. DOMPERIDONE [Concomitant]
     Dosage: 20 MG
     Route: 048
  3. GENOTROPIN [Suspect]
     Indication: HYPOTHYROIDISM
  4. GENOTROPIN [Concomitant]
     Dosage: 0.5 MG, 1X/DAY
     Route: 058
  5. ALBUTEROL [Concomitant]
     Dosage: 3 ML, EVERY 6 HOURS AS NEEDED
  6. NEXIUM [Concomitant]
     Dosage: 40 MG, 2X/DAY
     Route: 048
  7. LASIX [Concomitant]
     Dosage: 20 MG, 1X/DAY
     Route: 048
  8. VITAMIN D [Concomitant]
     Dosage: 1 DF, 1X/DAY
     Route: 048
  9. ALBUTEROL [Concomitant]
     Dosage: 2 PUFF(S), EVERY 4 HOURS AS NEEDED
  10. LISINOPRIL [Suspect]
     Dosage: 2.5 MG, 1X/DAY
     Route: 048
  11. ZOFRAN [Concomitant]
     Dosage: 4 MG, EVERY 4 HOURS AS NEEDED
     Route: 048
  12. MIRTAZAPINE [Concomitant]
     Dosage: 15 MG, 1X/DAY
     Route: 048
  13. INDERAL LA [Concomitant]
     Dosage: 80 MG, 1X/DAY
     Route: 048
  14. ADVAIR DISKUS 100/50 [Concomitant]
     Dosage: 1PUFF TWICE A DAY AS NEEDED
     Route: 055
  15. PREMARIN [Concomitant]
     Dosage: 0.625 MG, 1X/DAY
     Route: 048
  16. OXYCONTIN [Concomitant]
     Dosage: 10 MG, 3X/DAY
     Route: 048
  17. CALCIUM WITH VITAMIN D [Concomitant]
     Dosage: 1 DF, 1X/DAY
     Route: 048
  18. GENOTROPIN [Suspect]
     Indication: DWARFISM
     Dosage: 5 MG, DAILY
     Route: 058
     Dates: start: 20110210
  19. VENLAFAXINE [Concomitant]
     Dosage: 1 DF, 1X/DAY
     Route: 048
  20. CARAFATE [Concomitant]
     Dosage: 1 G, 4X/DAY
     Route: 048
  21. SPIRIVA [Concomitant]
     Dosage: 18 UG, 1X/DAY
     Route: 055
  22. LEVOTHYROXINE [Concomitant]
     Dosage: 50 UG, 1 TAB(S), QDAY #30 TAB(S) 3 REFILLS 3 TOT
     Route: 048
  23. HYDROMORPHONE [Concomitant]
     Dosage: 2-4 MG, EVERY 6 HOURS AS NEEDED
     Route: 048
  24. ATIVAN [Concomitant]
     Dosage: 0.5 MG, 3X/DAY
     Route: 048

REACTIONS (2)
  - SUDDEN CARDIAC DEATH [None]
  - PNEUMONIA ASPIRATION [None]
